FAERS Safety Report 24226462 (Version 1)
Quarter: 2024Q3

REPORT INFORMATION
  Report Type: Spontaneous
  Country: US (occurrence: US)
  Receive Date: 20240820
  Receipt Date: 20240820
  Transmission Date: 20241017
  Serious: No
  Sender: ACCORD
  Company Number: US-Accord-424525

PATIENT
  Sex: Male

DRUGS (2)
  1. ANASTROZOLE [Suspect]
     Active Substance: ANASTROZOLE
     Indication: Blood testosterone decreased
     Dosage: BY MOUTH WEEKLY,
     Dates: start: 2019
  2. TESTOSTERONE [Concomitant]
     Active Substance: TESTOSTERONE

REACTIONS (3)
  - Gamma-glutamyltransferase decreased [Unknown]
  - Red cell distribution width increased [Unknown]
  - Off label use [Unknown]
